FAERS Safety Report 4664085-X (Version None)
Quarter: 2005Q2

REPORT INFORMATION
  Report Type: 
  Country: None (occurrence: None)
  Receive Date: 20050516
  Receipt Date: 20050516
  Transmission Date: 20051028
  Serious: Yes (Hospitalization)
  Sender: FDA-Public Use
  Company Number: None

PATIENT
  Age: 72 Year
  Sex: Male
  Weight: 72.3 kg

DRUGS (4)
  1. HYDROCHLOROTHIAZIDE [Suspect]
     Indication: HYPERTENSION
     Dosage: 50 MG PO BID
     Route: 048
     Dates: start: 20041209, end: 20050202
  2. GLYBURIDE [Concomitant]
  3. METFORMIN HCL [Concomitant]
  4. MULTI-VITAMIN [Concomitant]

REACTIONS (1)
  - PANCREATITIS ACUTE [None]
